FAERS Safety Report 6687871-3 (Version None)
Quarter: 2010Q2

REPORT INFORMATION
  Report Type: 
  Country: None (occurrence: None)
  Receive Date: 20100420
  Receipt Date: 20100409
  Transmission Date: 20101027
  Serious: Yes (Hospitalization, Other)
  Sender: FDA-Public Use
  Company Number: US-NOVOPROD-307008

PATIENT
  Sex: Male

DRUGS (2)
  1. NOVOLOG [Suspect]
     Indication: DIABETES MELLITUS
     Dosage: UNKNOWN
  2. LANTUS [Suspect]
     Indication: DIABETES MELLITUS
     Dosage: UNK IU, QD
     Dates: end: 20100326

REACTIONS (3)
  - DIABETIC COMA [None]
  - EXPIRED DRUG ADMINISTERED [None]
  - PANCREATITIS [None]
